FAERS Safety Report 15809140 (Version 3)
Quarter: 2019Q1

REPORT INFORMATION
  Report Type: Report from Study
  Country: US (occurrence: US)
  Receive Date: 20190110
  Receipt Date: 20190212
  Transmission Date: 20190417
  Serious: Yes (Death, Hospitalization)
  Sender: FDA-Public Use
  Company Number: US-ACTELION-A-NJ2019-184687

PATIENT
  Age: 85 Year
  Sex: Female

DRUGS (6)
  1. POTASSIUM [Concomitant]
     Active Substance: POTASSIUM
  2. SILDENAFIL. [Concomitant]
     Active Substance: SILDENAFIL
  3. XARELTO [Concomitant]
     Active Substance: RIVAROXABAN
  4. PREDNISOLONE. [Concomitant]
     Active Substance: PREDNISOLONE
  5. OPSUMIT [Suspect]
     Active Substance: MACITENTAN
     Indication: PULMONARY ARTERIAL HYPERTENSION
     Dosage: 10 MG, QD
     Route: 048
     Dates: start: 20170214, end: 201901
  6. FUROSEMIDE. [Concomitant]
     Active Substance: FUROSEMIDE

REACTIONS (4)
  - Product dose omission [Not Recovered/Not Resolved]
  - Dyspnoea [Not Recovered/Not Resolved]
  - Death [Fatal]
  - Hospitalisation [Not Recovered/Not Resolved]

NARRATIVE: CASE EVENT DATE: 201901
